FAERS Safety Report 19057155 (Version 2)
Quarter: 2021Q2

REPORT INFORMATION
  Report Type: Report from Study
  Country: MX (occurrence: MX)
  Receive Date: 20210324
  Receipt Date: 20210409
  Transmission Date: 20210717
  Serious: Yes (Hospitalization, Other)
  Sender: FDA-Public Use
  Company Number: MX-BRISTOL-MYERS SQUIBB COMPANY-BMS-2021-026865

PATIENT
  Age: 48 Year
  Sex: Male

DRUGS (1)
  1. ABATACEPT [Suspect]
     Active Substance: ABATACEPT
     Indication: RHEUMATOID ARTHRITIS
     Dosage: 125 MILLIGRAM, QWK
     Route: 058
     Dates: start: 20180301, end: 20210303

REACTIONS (8)
  - Dyspnoea [Unknown]
  - Pyrexia [Unknown]
  - Apnoea [Unknown]
  - Pain [Unknown]
  - COVID-19 pneumonia [Recovering/Resolving]
  - Cyanosis [Unknown]
  - Hypoxia [Unknown]
  - Drug ineffective [Recovering/Resolving]

NARRATIVE: CASE EVENT DATE: 20210309
